FAERS Safety Report 17142976 (Version 1)
Quarter: 2019Q4

REPORT INFORMATION
  Report Type: Spontaneous
  Country: US (occurrence: US)
  Receive Date: 20191211
  Receipt Date: 20191211
  Transmission Date: 20200122
  Serious: No
  Sender: FDA-Public Use
  Company Number: US-PURDUE-USA-2019-0147720

PATIENT
  Sex: Male

DRUGS (1)
  1. HYDROMORPHONE TABLET (RHODES) [Suspect]
     Active Substance: HYDROMORPHONE
     Indication: PAIN
     Dosage: 2 MG, QID PRN
     Route: 048
     Dates: start: 20190627

REACTIONS (4)
  - Product colour issue [Unknown]
  - Drug ineffective [Recovered/Resolved]
  - Product physical issue [Unknown]
  - Product size issue [Unknown]
